FAERS Safety Report 5376227-1 (Version None)
Quarter: 2007Q3

REPORT INFORMATION
  Report Type: 
  Country: None (occurrence: None)
  Receive Date: 20070702
  Receipt Date: 20070622
  Transmission Date: 20080115
  Serious: Yes (Hospitalization)
  Sender: FDA-Public Use
  Company Number: US-ASTRAZENECA-2007UW14799

PATIENT
  Age: 24806 Day
  Sex: Male
  Weight: 90.9 kg

DRUGS (6)
  1. MEROPENEM [Suspect]
     Indication: ANTIBIOTIC LEVEL
     Route: 048
     Dates: start: 20070427, end: 20070501
  2. PACLITAXEL [Suspect]
     Indication: ADENOCARCINOMA
     Route: 042
     Dates: start: 20070416, end: 20070416
  3. CARBOPLATIN [Suspect]
     Indication: ADENOCARCINOMA
     Dosage: 468 AUC
     Route: 042
     Dates: start: 20070416, end: 20070416
  4. ETOPOSIDE [Suspect]
     Indication: ADENOCARCINOMA
     Dosage: 50 MG ALTERNATING WITH 100 MG
     Route: 048
     Dates: start: 20070416, end: 20070425
  5. PROTONIX [Concomitant]
     Indication: REFLUX GASTRITIS
  6. OXYCONTIN [Concomitant]
     Indication: PAIN

REACTIONS (5)
  - ASTHENIA [None]
  - FEBRILE NEUTROPENIA [None]
  - LETHARGY [None]
  - MUCOSAL INFLAMMATION [None]
  - PLATELET COUNT DECREASED [None]
